FAERS Safety Report 4508551-6 (Version None)
Quarter: 2004Q4

REPORT INFORMATION
  Report Type: 
  Country: None (occurrence: None)
  Receive Date: 20041123
  Receipt Date: 20040329
  Transmission Date: 20050328
  Serious: No
  Sender: FDA-Public Use
  Company Number: US-GLAXOSMITHKLINE-A0504888A

PATIENT
  Age: 40 Year
  Sex: Female

DRUGS (8)
  1. WELLBUTRIN SR [Suspect]
     Indication: DEPRESSION
     Dosage: 100MG TWICE PER DAY
     Route: 048
     Dates: start: 20020901, end: 20031101
  2. WELLBUTRIN XL [Suspect]
     Indication: DEPRESSION
     Route: 048
     Dates: start: 20040301
  3. LEVOXYL [Concomitant]
  4. ATENOLOL [Concomitant]
  5. SOMA [Concomitant]
  6. IMITREX [Concomitant]
  7. IBUPROFEN [Concomitant]
  8. TYLENOL W/ CODEINE [Concomitant]

REACTIONS (3)
  - ABDOMINAL PAIN UPPER [None]
  - MENSTRUAL DISORDER [None]
  - NAUSEA [None]
